FAERS Safety Report 24389155 (Version 2)
Quarter: 2024Q4

REPORT INFORMATION
  Report Type: Report from Study
  Country: US (occurrence: US)
  Receive Date: 20241002
  Receipt Date: 20241129
  Transmission Date: 20250114
  Serious: Yes (Hospitalization)
  Sender: ABBVIE
  Company Number: US-ABBVIE-5944393

PATIENT
  Sex: Female

DRUGS (1)
  1. SKYRIZI [Suspect]
     Active Substance: RISANKIZUMAB-RZAA
     Indication: Psoriasis
     Route: 058

REACTIONS (7)
  - Clostridium difficile infection [Unknown]
  - Pruritus [Unknown]
  - Injection site mass [Unknown]
  - Vulvovaginal pruritus [Unknown]
  - Anal pruritus [Unknown]
  - Alopecia [Unknown]
  - Oral herpes [Unknown]
